FAERS Safety Report 7757722-4 (Version None)
Quarter: 2011Q3

REPORT INFORMATION
  Report Type: 
  Country: None (occurrence: None)
  Receive Date: 20110916
  Receipt Date: 20110906
  Transmission Date: 20111222
  Serious: Yes (Hospitalization)
  Sender: FDA-Public Use
  Company Number: US-RB-032154-11

PATIENT
  Age: 60 Year
  Sex: Male

DRUGS (1)
  1. SUBOXONE [Suspect]
     Indication: PRODUCT USED FOR UNKNOWN INDICATION
     Dosage: UNKNOWN
     Route: 065

REACTIONS (5)
  - INGUINAL HERNIA [None]
  - MUSCULOSKELETAL DISCOMFORT [None]
  - BACK DISORDER [None]
  - THERAPEUTIC RESPONSE UNEXPECTED [None]
  - TONSILLAR DISORDER [None]
